FAERS Safety Report 8000913-8 (Version None)
Quarter: 2011Q4

REPORT INFORMATION
  Report Type: 
  Country: None (occurrence: None)
  Receive Date: 20111219
  Receipt Date: 20111205
  Transmission Date: 20120403
  Serious: Yes (Life-Threatening, Hospitalization, Other)
  Sender: FDA-Public Use
  Company Number: 2011MA017308

PATIENT
  Age: 41 Year
  Sex: Male

DRUGS (3)
  1. SUCCINYLCHOLINE CHLORIDE [Suspect]
     Indication: ANAESTHESIA
     Dosage: 150 MG
  2. BUPROPION HYDROCHLORIDE (WELLBUTRIN XL) [Suspect]
     Indication: DEPRESSION
     Dosage: 300 MG
  3. ETOMIDATE [Suspect]
     Indication: ANAESTHESIA
     Dosage: 30 MG

REACTIONS (7)
  - FATIGUE [None]
  - DYSTHYMIC DISORDER [None]
  - MERYCISM [None]
  - DEPRESSION [None]
  - MOOD ALTERED [None]
  - DECREASED INTEREST [None]
  - SUICIDAL IDEATION [None]
